FAERS Safety Report 12850333 (Version 6)
Quarter: 2017Q1

REPORT INFORMATION
  Report Type: Spontaneous
  Country: US (occurrence: US)
  Receive Date: 20161014
  Receipt Date: 20170119
  Transmission Date: 20170428
  Serious: Yes (Hospitalization)
  Sender: FDA-Public Use
  Company Number: US-VERTEX PHARMACEUTICALS-2016-005822

PATIENT
  Age: 19 Year
  Sex: Male
  Weight: 50 kg

DRUGS (18)
  1. CREON [Concomitant]
     Active Substance: PANCRELIPASE AMYLASE\PANCRELIPASE LIPASE\PANCRELIPASE PROTEASE
  2. NADOLOL. [Concomitant]
     Active Substance: NADOLOL
  3. PULMOZYME [Concomitant]
     Active Substance: DORNASE ALFA
  4. HYDROCHLOROTHIAZIDE. [Concomitant]
     Active Substance: HYDROCHLOROTHIAZIDE
  5. LANSOPRAZOLE. [Concomitant]
     Active Substance: LANSOPRAZOLE
  6. MINOCYCLINE [Concomitant]
     Active Substance: MINOCYCLINE\MINOCYCLINE HYDROCHLORIDE
  7. QVAR [Concomitant]
     Active Substance: BECLOMETHASONE DIPROPIONATE
  8. ORKAMBI [Suspect]
     Active Substance: IVACAFTOR\LUMACAFTOR
     Indication: CYSTIC FIBROSIS
     Dosage: 2 DF, (400-250 MG) BID
     Route: 048
     Dates: start: 201507
  9. TOBI [Concomitant]
     Active Substance: TOBRAMYCIN
  10. INSULIN [Concomitant]
     Active Substance: INSULIN NOS
  11. URSODIOL. [Concomitant]
     Active Substance: URSODIOL
  12. SULFAMETHOXAZOLE [Concomitant]
     Active Substance: SULFAMETHOXAZOLE
  13. VENTOLIN [Concomitant]
     Active Substance: ALBUTEROL SULFATE
  14. ADVIL [Concomitant]
     Active Substance: IBUPROFEN
  15. FERROUS SULFATE. [Concomitant]
     Active Substance: FERROUS SULFATE
  16. ACIDOPHILUS, LACTOBACILLUS [Concomitant]
  17. MEPHYTON [Concomitant]
     Active Substance: PHYTONADIONE
  18. ITRACONAZOLE. [Concomitant]
     Active Substance: ITRACONAZOLE

REACTIONS (1)
  - Infective pulmonary exacerbation of cystic fibrosis [Recovered/Resolved]

NARRATIVE: CASE EVENT DATE: 20160923
